FAERS Safety Report 20357432 (Version 1)
Quarter: 2022Q1

REPORT INFORMATION
  Report Type: Spontaneous
  Country: US (occurrence: US)
  Receive Date: 20220120
  Receipt Date: 20220120
  Transmission Date: 20220423
  Serious: Yes (Other)
  Sender: FDA-Public Use
  Company Number: US-IGSA-BIG0017259

PATIENT
  Age: 17 Month
  Sex: Female
  Weight: 11 kg

DRUGS (1)
  1. HUMAN IMMUNOGLOBULIN G [Suspect]
     Active Substance: HUMAN IMMUNOGLOBULIN G
     Indication: Multisystem inflammatory syndrome in children
     Route: 042

REACTIONS (2)
  - Transfusion-related circulatory overload [Recovering/Resolving]
  - Grunting [Recovering/Resolving]
